FAERS Safety Report 18230624 (Version 1)
Quarter: 2020Q3

REPORT INFORMATION
  Report Type: Spontaneous
  Country: CA (occurrence: CA)
  Receive Date: 20200903
  Receipt Date: 20200903
  Transmission Date: 20201103
  Serious: Yes (Other)
  Sender: FDA-Public Use
  Company Number: CA-ROCHE-2669133

PATIENT

DRUGS (2)
  1. OCREVUS [Suspect]
     Active Substance: OCRELIZUMAB
     Indication: PRODUCT USED FOR UNKNOWN INDICATION
     Dosage: INFUSION # 01
     Route: 065
     Dates: start: 20200814
  2. OCREVUS [Suspect]
     Active Substance: OCRELIZUMAB
     Dosage: INFUSION # 02
     Route: 065
     Dates: start: 20200828

REACTIONS (1)
  - Hernia pain [Unknown]
